FAERS Safety Report 5752401-7 (Version None)
Quarter: 2008Q2

REPORT INFORMATION
  Report Type: 
  Country: None (occurrence: None)
  Receive Date: 20080529
  Receipt Date: 20080523
  Transmission Date: 20081010
  Serious: Yes (Hospitalization)
  Sender: FDA-Public Use
  Company Number: A0730279A

PATIENT
  Age: 14 Year
  Sex: Female

DRUGS (1)
  1. LAMICTAL [Suspect]
     Route: 048
     Dates: start: 20060701, end: 20060701

REACTIONS (24)
  - ANXIETY [None]
  - BLISTER [None]
  - DEPRESSION [None]
  - EMOTIONAL DISTRESS [None]
  - ERYTHEMA [None]
  - EYELID OEDEMA [None]
  - FATIGUE [None]
  - FEELING HOT [None]
  - INSOMNIA [None]
  - LIP SWELLING [None]
  - MALAISE [None]
  - MUCOUS MEMBRANE DISORDER [None]
  - ORAL DISCOMFORT [None]
  - ORAL INFECTION [None]
  - PAIN [None]
  - PRURITUS [None]
  - RESPIRATORY DISORDER [None]
  - SCAR [None]
  - STEVENS-JOHNSON SYNDROME [None]
  - STOMATITIS [None]
  - SWELLING [None]
  - SWELLING FACE [None]
  - THERMAL BURN [None]
  - VISION BLURRED [None]
